FAERS Safety Report 4595933-X (Version None)
Quarter: 2005Q1

REPORT INFORMATION
  Report Type: 
  Country: None (occurrence: None)
  Receive Date: 20050224
  Receipt Date: 20050204
  Transmission Date: 20050727
  Serious: Yes (Death)
  Sender: FDA-Public Use
  Company Number: EWC050242587

PATIENT
  Age: 48 Year
  Sex: Male
  Weight: 52 kg

DRUGS (2)
  1. FLUOXETINE [Suspect]
     Indication: DEPRESSION
     Dosage: 20 MG DAY
     Dates: start: 20041230
  2. NITRAZEPAM [Concomitant]

REACTIONS (1)
  - COMPLETED SUICIDE [None]
